FAERS Safety Report 7736853-9 (Version None)
Quarter: 2011Q3

REPORT INFORMATION
  Report Type: 
  Country: None (occurrence: None)
  Receive Date: 20110908
  Receipt Date: 20110829
  Transmission Date: 20111222
  Serious: Yes (Hospitalization)
  Sender: FDA-Public Use
  Company Number: PHHO2011GB15008

PATIENT
  Sex: Male

DRUGS (5)
  1. NITROMIN [Concomitant]
     Indication: DYSPNOEA
     Dosage: UNK
     Dates: start: 20091223, end: 20100201
  2. AMLODIPINE [Concomitant]
     Indication: ANGINA PECTORIS
     Dosage: UNK
     Dates: start: 20091216, end: 20100106
  3. NITROGLYCERIN [Concomitant]
     Indication: ANGINA PECTORIS
     Dosage: UNK
     Dates: start: 20091223
  4. CELECOXIB [Concomitant]
     Indication: OSTEOARTHRITIS
     Dosage: UNK
     Dates: start: 20081030, end: 20081120
  5. DICLOFENAC SODIUM [Suspect]
     Indication: OSTEOARTHRITIS
     Dosage: 500 MG, TID
     Dates: start: 20090813

REACTIONS (2)
  - OBSTRUCTIVE AIRWAYS DISORDER [None]
  - CHEST PAIN [None]
